FAERS Safety Report 4324243-0 (Version None)
Quarter: 2004Q1

REPORT INFORMATION
  Report Type: 
  Country: None (occurrence: None)
  Receive Date: 20040326
  Receipt Date: 20040113
  Transmission Date: 20041129
  Serious: No
  Sender: FDA-Public Use
  Company Number: US-GLAXOSMITHKLINE-A0492885A

PATIENT
  Age: 76 Year
  Sex: Male

DRUGS (2)
  1. ADVAIR DISKUS 100/50 [Suspect]
     Indication: ASTHMA
     Dosage: 1PUFF TWICE PER DAY
     Route: 055
     Dates: start: 20040101, end: 20040110
  2. ARICEPT [Concomitant]

REACTIONS (3)
  - HEADACHE [None]
  - HOARSENESS [None]
  - PARANASAL SINUS HYPERSECRETION [None]
